FAERS Safety Report 6129880-9 (Version None)
Quarter: 2009Q1

REPORT INFORMATION
  Report Type: 
  Country: None (occurrence: None)
  Receive Date: 20090324
  Receipt Date: 20090312
  Transmission Date: 20090719
  Serious: Yes (Other)
  Sender: FDA-Public Use
  Company Number: PE-PFIZER INC-2009183432

PATIENT

DRUGS (4)
  1. AMLODIPINE [Suspect]
     Dates: start: 20070531
  2. ENALAPRIL [Suspect]
     Dates: start: 20070531
  3. VALSARTAN [Suspect]
     Indication: HYPERTENSION
  4. HYDROCHLOROTHIAZIDE [Suspect]
     Indication: HYPERTENSION

REACTIONS (3)
  - BLOOD CREATINE PHOSPHOKINASE INCREASED [None]
  - HEPATIC STEATOSIS [None]
  - MYALGIA [None]
